FAERS Safety Report 8918916 (Version 3)
Quarter: 2013Q1

REPORT INFORMATION
  Report Type: Report from Study
  Country: JP (occurrence: JP)
  Receive Date: 20121121
  Receipt Date: 20130225
  Transmission Date: 20140127
  Serious: Yes (Other)
  Sender: FDA-Public Use
  Company Number: JP-VERTEX PHARMACEUTICAL INC.-AE-2012-008713

PATIENT
  Age: 55 Year
  Sex: Female

DRUGS (10)
  1. VX-950 (TELAPREVIR) [Suspect]
     Indication: CHRONIC HEPATITIS C
     Dosage: 1500 MG, QD
     Route: 048
     Dates: start: 20120517, end: 20120606
  2. RIBAVIRIN [Suspect]
     Indication: CHRONIC HEPATITIS C
     Dosage: 400 MG, QD
     Route: 048
     Dates: start: 20120517, end: 20120523
  3. RIBAVIRIN [Suspect]
     Dosage: 200 MG, QD
     Route: 048
     Dates: start: 20120524, end: 20120606
  4. PEGINTERFERON ALFA-2B [Suspect]
     Indication: CHRONIC HEPATITIS C
     Dosage: 1.5 ?G/KG, QW
     Route: 058
     Dates: start: 20120517, end: 20120531
  5. MUCODYNE [Concomitant]
     Dosage: 1500 MG, QD PRN
     Route: 048
  6. BENZALIN [Concomitant]
     Dosage: 5 MG, QD
     Route: 048
  7. RHYTHMY [Concomitant]
     Dosage: 2 MG, QD
     Route: 048
  8. DEPAKENE [Concomitant]
     Dosage: 200 MG, QD
     Route: 048
  9. MYSLEE [Concomitant]
     Dosage: 10 MG, QD, PRN
     Route: 048
     Dates: start: 20120517, end: 20120531
  10. VITANEURIN [Concomitant]
     Dosage: 150 MG, QD
     Route: 048

REACTIONS (2)
  - Neutrophil count decreased [Recovered/Resolved]
  - Stevens-Johnson syndrome [Recovered/Resolved]
